FAERS Safety Report 8235582 (Version 5)
Quarter: 2013Q4

REPORT INFORMATION
  Report Type: Report from Study
  Country: CA (occurrence: CA)
  Receive Date: 20111108
  Receipt Date: 20131212
  Transmission Date: 20140711
  Serious: Yes (Hospitalization)
  Sender: FDA-Public Use
  Company Number: PHHY2009CA54301

PATIENT
  Age: 54 Year
  Sex: Female

DRUGS (4)
  1. ACLASTA [Suspect]
     Indication: OSTEOPOROSIS
     Dosage: UNK
     Route: 042
     Dates: start: 20091208
  2. ACLASTA [Suspect]
     Dosage: UNK
     Route: 042
     Dates: start: 20101208
  3. ACLASTA [Suspect]
     Dosage: UNK
     Route: 042
     Dates: start: 20111206
  4. ACLASTA [Suspect]
     Dosage: UNK
     Route: 042
     Dates: start: 20121210

REACTIONS (10)
  - Pneumonia [Unknown]
  - Pleural effusion [Unknown]
  - Tachycardia [Unknown]
  - Pyrexia [Recovering/Resolving]
  - Myalgia [Recovering/Resolving]
  - Diarrhoea [Recovering/Resolving]
  - Asthenia [Unknown]
  - Muscular weakness [Unknown]
  - Palpitations [Unknown]
  - Anaemia [Unknown]
